FAERS Safety Report 5715257-4 (Version None)
Quarter: 2008Q2

REPORT INFORMATION
  Report Type: 
  Country: None (occurrence: None)
  Receive Date: 20080423
  Receipt Date: 20080411
  Transmission Date: 20081010
  Serious: Yes (Other)
  Sender: FDA-Public Use
  Company Number: US-PFIZER INC-2008018021

PATIENT
  Age: 75 Year
  Sex: Female

DRUGS (2)
  1. DILANTIN [Suspect]
     Dosage: DAILY DOSE:500MG
  2. BENADRYL [Suspect]
     Indication: DRUG HYPERSENSITIVITY

REACTIONS (6)
  - HYPERSENSITIVITY [None]
  - PRURITUS [None]
  - SEDATION [None]
  - STATUS EPILEPTICUS [None]
  - URTICARIA [None]
  - WHEEZING [None]
